FAERS Safety Report 8257030-1 (Version None)
Quarter: 2012Q2

REPORT INFORMATION
  Report Type: 
  Country: None (occurrence: None)
  Receive Date: 20120403
  Receipt Date: 20120326
  Transmission Date: 20120825
  Serious: Yes (Death, Hospitalization)
  Sender: FDA-Public Use
  Company Number: MX-GLAXOSMITHKLINE-A0971927A

PATIENT
  Age: 66 Year
  Sex: Male

DRUGS (1)
  1. PAROXETINE HCL [Suspect]
     Indication: DEPRESSION
     Dosage: 20MG PER DAY
     Route: 048
     Dates: start: 20120130, end: 20120202

REACTIONS (4)
  - METASTASES TO CENTRAL NERVOUS SYSTEM [None]
  - PNEUMONIA [None]
  - SEPTIC SHOCK [None]
  - BRAIN NEOPLASM [None]
